FAERS Safety Report 10475702 (Version 1)
Quarter: 2014Q3

REPORT INFORMATION
  Report Type: Spontaneous
  Country: US (occurrence: US)
  Receive Date: 20140925
  Receipt Date: 20140925
  Transmission Date: 20150326
  Serious: No
  Sender: FDA-Public Use
  Company Number: US-BAYER-2014-142557

PATIENT
  Age: 79 Year
  Sex: Female
  Weight: 62.13 kg

DRUGS (7)
  1. BABY ASPIRIN [Concomitant]
     Active Substance: ASPIRIN
     Dosage: 81 MG, QD
     Route: 048
     Dates: start: 2012
  2. SIMVASTATIN. [Concomitant]
     Active Substance: SIMVASTATIN
     Indication: BLOOD CHOLESTEROL INCREASED
     Dosage: 40 MG, QD
     Route: 048
     Dates: start: 2012
  3. OSTEO BI-FLEX [Concomitant]
     Active Substance: CHONDROITIN SULFATE A\GLUCOSAMINE
     Indication: ARTHROPATHY
     Dosage: 1 DF, QD
     Route: 048
     Dates: start: 20140901
  4. ESTRADIOL HEMIHYDRATE (PATCH) [Suspect]
     Active Substance: ESTRADIOL HEMIHYDRATE
     Indication: HOT FLUSH
     Dosage: UNK
     Route: 062
     Dates: start: 20140802
  5. VITAMIN D3 [Concomitant]
     Active Substance: CHOLECALCIFEROL
     Indication: VITAMIN SUPPLEMENTATION
     Dosage: 1000 IU, QD
     Route: 048
     Dates: start: 2012
  6. LOSARTAN [Concomitant]
     Active Substance: LOSARTAN
     Indication: HYPERTENSION
     Dosage: 50 MG, QD
     Route: 048
     Dates: start: 2012
  7. MULTI-VITAMIN [Concomitant]
     Active Substance: .ALPHA.-TOCOPHEROL ACETATE, DL-\ASCORBIC ACID\CYANOCOBALAMIN\FLUORIDE ION\FOLIC ACID\NIACIN\PYRIDOXINE\RIBOFLAVIN\THIAMINE\VITAMIN A\VITAMIN D
     Indication: VITAMIN SUPPLEMENTATION
     Dosage: 1 DF, QD
     Route: 048
     Dates: start: 1999

REACTIONS (2)
  - Drug ineffective [Not Recovered/Not Resolved]
  - Product adhesion issue [None]

NARRATIVE: CASE EVENT DATE: 20140802
